FAERS Safety Report 9749071 (Version 1)
Quarter: 2013Q4

REPORT INFORMATION
  Report Type: Spontaneous
  Country: US (occurrence: US)
  Receive Date: 20131212
  Receipt Date: 20131212
  Transmission Date: 20140711
  Serious: No
  Sender: FDA-Public Use
  Company Number: US-TEVA-390715USA

PATIENT
  Age: 44 Year
  Sex: Female
  Weight: 60.84 kg

DRUGS (2)
  1. PARAGARD 380A [Suspect]
     Indication: CONTRACEPTION
     Route: 015
     Dates: start: 200302, end: 20130304
  2. DIOVAN [Concomitant]
     Indication: HYPERTENSION
     Dosage: SELF ADJUSTING

REACTIONS (3)
  - Complication of device insertion [Not Recovered/Not Resolved]
  - Metrorrhagia [Not Recovered/Not Resolved]
  - Pain [Recovered/Resolved]
